FAERS Safety Report 6183532-8 (Version None)
Quarter: 2009Q2

REPORT INFORMATION
  Report Type: 
  Country: None (occurrence: None)
  Receive Date: 20090508
  Receipt Date: 20090424
  Transmission Date: 20091009
  Serious: Yes (Other)
  Sender: FDA-Public Use
  Company Number: ES-RANBAXY-2009RR-23707

PATIENT
  Age: 54 Year
  Sex: Male

DRUGS (9)
  1. RISPERIDONE [Suspect]
     Indication: PSYCHOTIC DISORDER
     Dosage: 1 MG, QD
     Route: 048
  2. SIMVASTATIN [Suspect]
     Dosage: 40 MG, QD
  3. CYCLOSPORINE [Suspect]
     Indication: PROPHYLAXIS
     Dosage: 0.5 MG, BID
     Route: 042
  4. CYCLOSPORINE [Suspect]
     Dosage: 1.5 MG, BID
  5. ATENOLOL [Concomitant]
  6. ENALAPRIL MALEATE [Concomitant]
  7. ACYCLOVIR SODIUM [Concomitant]
     Indication: PROPHYLAXIS
  8. VORICONAZOLE [Concomitant]
     Indication: PROPHYLAXIS
  9. METHOTREXATE [Concomitant]

REACTIONS (2)
  - DRUG INTERACTION [None]
  - RENAL FAILURE ACUTE [None]
